FAERS Safety Report 19987332 (Version 1)
Quarter: 2021Q4

REPORT INFORMATION
  Report Type: Report from Study
  Country: US (occurrence: US)
  Receive Date: 20211023
  Receipt Date: 20211023
  Transmission Date: 20220303
  Serious: Yes (Hospitalization, Other)
  Sender: FDA-Public Use
  Company Number: US-NOVARTISPH-NVSC2021US239024

PATIENT
  Age: 45 Year
  Sex: Male

DRUGS (1)
  1. ENTRESTO [Suspect]
     Active Substance: SACUBITRIL\VALSARTAN
     Indication: Cardiac failure
     Dosage: 1 MG, BID
     Route: 048
     Dates: start: 202109

REACTIONS (7)
  - COVID-19 [Unknown]
  - Oxygen saturation abnormal [Unknown]
  - Heart rate increased [Unknown]
  - Malaise [Unknown]
  - Mobility decreased [Unknown]
  - Sinus disorder [Unknown]
  - Cardiac disorder [Unknown]

NARRATIVE: CASE EVENT DATE: 20210901
